FAERS Safety Report 9757520 (Version 1)
Quarter: 2013Q4

REPORT INFORMATION
  Report Type: Report from Study
  Country: AR (occurrence: AR)
  Receive Date: 20131216
  Receipt Date: 20131216
  Transmission Date: 20140711
  Serious: Yes (Other)
  Sender: FDA-Public Use
  Company Number: AR-ROCHE-1318899

PATIENT
  Sex: Male

DRUGS (1)
  1. RANIBIZUMAB [Suspect]
     Indication: GLAUCOMA
     Route: 050

REACTIONS (3)
  - Cartilage injury [Recovering/Resolving]
  - Visual impairment [Not Recovered/Not Resolved]
  - Drug ineffective [Unknown]
